FAERS Safety Report 17051770 (Version 3)
Quarter: 2020Q1

REPORT INFORMATION
  Report Type: Spontaneous
  Country: JP (occurrence: JP)
  Receive Date: 20191120
  Receipt Date: 20200205
  Transmission Date: 20200409
  Serious: Yes (Hospitalization)
  Sender: FDA-Public Use
  Company Number: JP-ABBVIE-19P-087-3008811-00

PATIENT
  Age: 37 Year
  Sex: Female

DRUGS (4)
  1. LYRICA [Suspect]
     Active Substance: PREGABALIN
     Indication: PRODUCT USED FOR UNKNOWN INDICATION
     Dosage: UNK
     Route: 065
  2. LEUPLIN [Suspect]
     Active Substance: LEUPROLIDE ACETATE
     Indication: ENDOMETRIOSIS
     Dosage: 1.88 MILLIGRAM, Q4WEEKS
     Route: 058
     Dates: start: 20191031, end: 20191031
  3. VERAPAMIL HCL [Suspect]
     Active Substance: VERAPAMIL HYDROCHLORIDE
     Indication: PRODUCT USED FOR UNKNOWN INDICATION
     Dosage: UNK
     Route: 065
  4. SHAKUYAKUKANZOTO [Concomitant]
     Active Substance: HERBALS
     Indication: DYSMENORRHOEA
     Dosage: 2.5 GRAM, TID
     Route: 048
     Dates: start: 20191029, end: 20191108

REACTIONS (8)
  - Gait disturbance [Recovering/Resolving]
  - Back pain [Recovering/Resolving]
  - Hypoaesthesia [Unknown]
  - Wheezing [Unknown]
  - Nausea [Unknown]
  - Vaginal haemorrhage [Unknown]
  - Nausea [Unknown]
  - Dizziness [Unknown]

NARRATIVE: CASE EVENT DATE: 20191101
